FAERS Safety Report 4726409-4 (Version None)
Quarter: 2005Q3

REPORT INFORMATION
  Report Type: 
  Country: None (occurrence: None)
  Receive Date: 20050726
  Receipt Date: 20050511
  Transmission Date: 20060218
  Serious: No
  Sender: FDA-Public Use
  Company Number: REM_00117_2005

PATIENT
  Age: 46 Year
  Sex: Male
  Weight: 97.3 kg

DRUGS (4)
  1. REMODULIN [Suspect]
     Indication: PULMONARY HYPERTENSION
     Dosage: 15 NG/KG/MIN CONTINUOUS SC
     Route: 058
     Dates: start: 20050106
  2. PLO GEL D [Concomitant]
  3. XALATAN [Concomitant]
  4. ALDACTONE [Concomitant]

REACTIONS (4)
  - INFUSION SITE PAIN [None]
  - INFUSION SITE PRURITUS [None]
  - INFUSION SITE RASH [None]
  - INFUSION SITE REACTION [None]
